FAERS Safety Report 24757264 (Version 1)
Quarter: 2024Q4

REPORT INFORMATION
  Report Type: Spontaneous
  Country: DE (occurrence: DE)
  Receive Date: 20241220
  Receipt Date: 20241220
  Transmission Date: 20250115
  Serious: Yes (Death, Life-Threatening, Hospitalization, Other)
  Sender: MERCK KGAA
  Company Number: DE-EMA-DD-20200324-sandevhp-122251

PATIENT
  Sex: Female
  Weight: 52 kg

DRUGS (30)
  1. PREDNISOLONE [Suspect]
     Active Substance: PREDNISOLONE
     Indication: Systemic lupus erythematosus
     Dosage: 5 MG, QD
     Dates: start: 1988
  2. LEVOTHYROXINE [Suspect]
     Active Substance: LEVOTHYROXINE
     Indication: Systemic lupus erythematosus
  3. FLUVASTATIN [Suspect]
     Active Substance: FLUVASTATIN SODIUM
     Indication: Systemic lupus erythematosus
     Dosage: UNK.QD 20 (0-0-1)
  4. VALSARTAN [Suspect]
     Active Substance: VALSARTAN
     Indication: Systemic lupus erythematosus
     Dosage: UNK UNK, BID 160 (1-0-1)
  5. ACYCLOVIR [Suspect]
     Active Substance: ACYCLOVIR
     Indication: Systemic lupus erythematosus
     Dosage: 400 MILLIGRAM, QD
  6. ACYCLOVIR [Suspect]
     Active Substance: ACYCLOVIR
     Dosage: 400 MG, 3X/DAY
  7. ACYCLOVIR [Suspect]
     Active Substance: ACYCLOVIR
     Dosage: 1200 MILLIGRAM, QD
  8. BENLYSTA [Suspect]
     Active Substance: BELIMUMAB
     Indication: White blood cell count decreased
     Dosage: 200 MG/KG, WEEKLY
     Route: 058
     Dates: start: 201708, end: 201904
  9. BENLYSTA [Suspect]
     Active Substance: BELIMUMAB
     Indication: Systemic lupus erythematosus
     Dosage: 200 MG, WE?200 MILLIGRAM/KILOGRAM, QWK
     Route: 058
     Dates: start: 201806, end: 201807
  10. BENLYSTA [Suspect]
     Active Substance: BELIMUMAB
     Dosage: 10 MG/KG, WE?10 MILLIGRAM/KILOGRAM, QWK
     Route: 058
     Dates: start: 201711, end: 201812
  11. MOLSIDOMINE [Suspect]
     Active Substance: MOLSIDOMINE
     Indication: Systemic lupus erythematosus
     Dosage: QD 8 RET (0-0-1)
  12. ELIQUIS [Suspect]
     Active Substance: APIXABAN
     Indication: Systemic lupus erythematosus
  13. AZATHIOPRINE [Suspect]
     Active Substance: AZATHIOPRINE
     Indication: White blood cell count decreased
     Dosage: UNKNOWN DOSAGE
     Dates: start: 1997, end: 2008
  14. AZATHIOPRINE [Suspect]
     Active Substance: AZATHIOPRINE
     Indication: Systemic lupus erythematosus
     Dosage: 50 MG
     Dates: start: 20100419, end: 201904
  15. AZATHIOPRINE [Suspect]
     Active Substance: AZATHIOPRINE
     Indication: Lymphopenia
     Dates: start: 201906, end: 201907
  16. DETRUSITOL [Suspect]
     Active Substance: TOLTERODINE TARTRATE
     Indication: Systemic lupus erythematosus
  17. MORPHINE [Suspect]
     Active Substance: MORPHINE
     Indication: Systemic lupus erythematosus
     Dosage: UNK, 20 TO S5X/D
  18. PENTACARINAT [Suspect]
     Active Substance: PENTAMIDINE ISETHIONATE
     Indication: Systemic lupus erythematosus
     Route: 055
     Dates: start: 201904
  19. HYDROXYCHLOROQUINE [Concomitant]
     Active Substance: HYDROXYCHLOROQUINE
     Indication: Product used for unknown indication
     Dosage: 200 MG
     Dates: start: 1994, end: 1997
  20. MCP [Concomitant]
     Active Substance: METOCLOPRAMIDE HYDROCHLORIDE
     Indication: Product used for unknown indication
     Dosage: UNK UNK, TID 10 (UNITS UNSPECIFIED)
  21. CHOLECALCIFEROL [Concomitant]
     Active Substance: CHOLECALCIFEROL
     Indication: Product used for unknown indication
     Dosage: WE, 20000 (UNITS UNSPECIFIED)
  22. LAXATAN M [Concomitant]
     Indication: Product used for unknown indication
  23. NITRENDIPINE [Concomitant]
     Active Substance: NITRENDIPINE
     Indication: Product used for unknown indication
     Dosage: UNKNOWN
  24. MORPHINE [Concomitant]
     Active Substance: MORPHINE
     Indication: Product used for unknown indication
     Dosage: UNK UNK, BID 30 RET (1-0-1)
  25. UMECLIDINIUM BROMIDE\VILANTEROL TRIFENATATE [Concomitant]
     Active Substance: UMECLIDINIUM BROMIDE\VILANTEROL TRIFENATATE
     Indication: Product used for unknown indication
     Dosage: UNK, 55/221 PUSH
     Route: 055
  26. EZETIMIBE [Concomitant]
     Active Substance: EZETIMIBE
     Indication: Product used for unknown indication
     Dosage: UNK UNK, QD 10 (0-0-1)
  27. ISDN [Concomitant]
     Indication: Product used for unknown indication
     Dosage: UNK UNK, BID 20 RET (1-1-0)
  28. LEVOTHYROXINE SODIUM [Concomitant]
     Active Substance: LEVOTHYROXINE SODIUM
     Indication: Product used for unknown indication
     Dosage: UNK UNK, QD 50 (1-0-0)
  29. DULOXETINE [Concomitant]
     Active Substance: DULOXETINE
     Indication: Product used for unknown indication
     Dosage: UNK UNK, QD 30 (1-0-0)
  30. SAB SIMPLEX [DIMETICONE] [Concomitant]
     Indication: Product used for unknown indication
     Dosage: UNK, 30GTT TO 3X/D

REACTIONS (28)
  - Peritonitis [Fatal]
  - Lymphopenia [Fatal]
  - Sepsis [Fatal]
  - Pneumocystis jirovecii pneumonia [Fatal]
  - Antinuclear antibody negative [Unknown]
  - Complex regional pain syndrome [Unknown]
  - Leukopenia [Unknown]
  - Fall [Unknown]
  - Coombs positive haemolytic anaemia [Unknown]
  - Gastrooesophageal reflux disease [Unknown]
  - Antiphospholipid syndrome [Unknown]
  - Pleuritic pain [Unknown]
  - Colitis ulcerative [Unknown]
  - Hypothyroidism [Unknown]
  - Systemic lupus erythematosus [Unknown]
  - Thrombocytopenia [Unknown]
  - Skin disorder [Unknown]
  - Urinary tract infection [Unknown]
  - Gastritis haemorrhagic [Unknown]
  - Erysipelas [Unknown]
  - Hypertension [Unknown]
  - Herpes simplex reactivation [Unknown]
  - Depression [Unknown]
  - Pancreatitis acute [Unknown]
  - Anxiety disorder [Unknown]
  - Osteonecrosis [Unknown]
  - Hyperlipidaemia [Unknown]
  - Intentional product use issue [Unknown]
